FAERS Safety Report 9161362 (Version 2)
Quarter: 2013Q1

REPORT INFORMATION
  Report Type: Spontaneous
  Country: US (occurrence: US)
  Receive Date: 20130313
  Receipt Date: 20130315
  Transmission Date: 20140127
  Serious: No
  Sender: FDA-Public Use
  Company Number: US-009507513-1303USA002612

PATIENT
  Sex: Male

DRUGS (3)
  1. COSOPT [Suspect]
     Dosage: UNK
     Route: 047
  2. ZIOPTAN [Concomitant]
  3. COSOPT PF [Suspect]
     Route: 047

REACTIONS (4)
  - Erythema [Recovered/Resolved]
  - Pruritus [Recovered/Resolved]
  - Product quality issue [Unknown]
  - Incorrect product storage [Unknown]
